FAERS Safety Report 23936097 (Version 3)
Quarter: 2024Q2

REPORT INFORMATION
  Report Type: Spontaneous
  Country: IT (occurrence: IT)
  Receive Date: 20240604
  Receipt Date: 20240621
  Transmission Date: 20240715
  Serious: Yes (Other)
  Sender: FDA-Public Use
  Company Number: IT-SUN PHARMACEUTICAL INDUSTRIES LTD-2024R1-448468

PATIENT
  Age: 62 Year
  Sex: Male

DRUGS (5)
  1. CLONAZEPAM [Suspect]
     Active Substance: CLONAZEPAM
     Indication: Sleep disorder
     Dosage: UNK
     Route: 065
  2. DOLUTEGRAVIR [Interacting]
     Active Substance: DOLUTEGRAVIR
     Indication: HIV infection
     Dosage: UNK
     Route: 065
  3. LAMIVUDINE [Interacting]
     Active Substance: LAMIVUDINE
     Indication: HIV infection
     Dosage: UNK
     Route: 065
  4. VALPROIC ACID [Interacting]
     Active Substance: VALPROIC ACID
     Indication: Sleep disorder
     Dosage: UNK
     Route: 065
  5. SERTRALINE [Concomitant]
     Active Substance: SERTRALINE HYDROCHLORIDE
     Indication: Sleep disorder
     Dosage: UNK
     Route: 065

REACTIONS (2)
  - Drug interaction [Unknown]
  - Drug level decreased [Unknown]
